FAERS Safety Report 15705493 (Version 1)
Quarter: 2018Q4

REPORT INFORMATION
  Report Type: Spontaneous
  Country: US (occurrence: US)
  Receive Date: 20181210
  Receipt Date: 20181210
  Transmission Date: 20190205
  Serious: No
  Sender: FDA-Public Use
  Company Number: None

PATIENT
  Age: 10 Year
  Sex: Male
  Weight: 36 kg

DRUGS (2)
  1. METHYLPHENIDATE ER 27MG TAB [Suspect]
     Active Substance: METHYLPHENIDATE
     Indication: ATTENTION DEFICIT/HYPERACTIVITY DISORDER
     Dosage: ?          QUANTITY:1 TABLET(S);?
     Route: 048
     Dates: start: 20181101, end: 20181130
  2. METHYLPHENIDATE ER 27MG TAB [Suspect]
     Active Substance: METHYLPHENIDATE
     Indication: AUTISM SPECTRUM DISORDER
     Dosage: ?          QUANTITY:1 TABLET(S);?
     Route: 048
     Dates: start: 20181101, end: 20181130

REACTIONS (11)
  - Listless [None]
  - Symptom recurrence [None]
  - Obsessive-compulsive disorder [None]
  - Device issue [None]
  - Product substitution issue [None]
  - Scab [None]
  - Asterixis [None]
  - Repetitive speech [None]
  - Psychomotor hyperactivity [None]
  - Scar [None]
  - Increased appetite [None]

NARRATIVE: CASE EVENT DATE: 20181101
